FAERS Safety Report 17041210 (Version 3)
Quarter: 2019Q4

REPORT INFORMATION
  Report Type: Spontaneous
  Country: RO (occurrence: RO)
  Receive Date: 20191118
  Receipt Date: 20191230
  Transmission Date: 20200122
  Serious: Yes (Hospitalization, Other)
  Sender: FDA-Public Use
  Company Number: RO-ROCHE-2477237

PATIENT
  Age: 63 Year

DRUGS (1)
  1. ACTILYSE [Suspect]
     Active Substance: ALTEPLASE
     Indication: THROMBOSIS
     Route: 065

REACTIONS (7)
  - Melaena [Unknown]
  - Pallor [Unknown]
  - Pulmonary embolism [Unknown]
  - Palpitations [Unknown]
  - Essential thrombocythaemia [Unknown]
  - Dyspnoea [Unknown]
  - Orthopnoea [Unknown]

NARRATIVE: CASE EVENT DATE: 20180215
